FAERS Safety Report 4691675-0 (Version None)
Quarter: 2005Q2

REPORT INFORMATION
  Report Type: 
  Country: None (occurrence: None)
  Receive Date: 20050616
  Receipt Date: 20050601
  Transmission Date: 20051028
  Serious: Yes (Death)
  Sender: FDA-Public Use
  Company Number: US-JNJFOC-20050600760

PATIENT
  Sex: Male

DRUGS (2)
  1. EXTRA STRENGTH TYLENOL [Suspect]
     Indication: PAIN
  2. EXTRA STRENGTH TYLENOL [Suspect]
     Indication: INSOMNIA

REACTIONS (2)
  - DEATH [None]
  - DRUG INEFFECTIVE [None]
